FAERS Safety Report 7607037 (Version 7)
Quarter: 2014Q2

REPORT INFORMATION
  Report Type: Report from Study
  Country: US (occurrence: US)
  Receive Date: 20100927
  Receipt Date: 20140401
  Transmission Date: 20141212
  Serious: Yes (Hospitalization)
  Sender: FDA-Public Use
  Company Number: US-ALEXION-A201001136

PATIENT
  Age: 23 Year
  Sex: Female
  Weight: 72.7 kg

DRUGS (13)
  1. SOLIRIS [Suspect]
     Indication: PAROXYSMAL NOCTURNAL HAEMOGLOBINURIA
     Dosage: 600 MG, QW
     Route: 042
     Dates: start: 20100721, end: 20100810
  2. SOLIRIS [Suspect]
     Dosage: 900 MG, Q2W
     Route: 042
     Dates: start: 20100817, end: 2010
  3. SOLIRIS [Suspect]
     Dosage: 1200 MG, Q2W
     Route: 042
     Dates: start: 20101109, end: 201011
  4. SOLIRIS [Suspect]
     Dosage: 900 MG, Q2W
     Route: 042
  5. METOCLOPRAMIDE [Suspect]
  6. AMBIEN [Concomitant]
     Dosage: UNK
     Route: 048
  7. CYMBALTA [Concomitant]
     Dosage: UNK
     Route: 048
  8. ATIVAN [Concomitant]
     Dosage: UNK
     Route: 048
  9. TALWIN                             /00052101/ [Concomitant]
     Indication: PAIN
     Dosage: UNK
     Route: 048
  10. METHIMAZOLE [Concomitant]
     Indication: BASEDOW^S DISEASE
     Dosage: UNK (NOT TAKING)
     Route: 048
  11. ORTHO EVRA [Concomitant]
     Indication: CONTRACEPTION
     Dosage: UNK
     Route: 048
  12. COUMADIN [Concomitant]
     Indication: ANTICOAGULANT THERAPY
  13. LOVENOX [Concomitant]
     Indication: ANTICOAGULANT THERAPY
     Dosage: UNK

REACTIONS (7)
  - Impaired gastric emptying [Recovering/Resolving]
  - Irritable bowel syndrome [Unknown]
  - Oesophagitis [Unknown]
  - Colitis [Unknown]
  - Poor venous access [Unknown]
  - Hypersensitivity [Unknown]
  - Contusion [Unknown]
